FAERS Safety Report 5102444-1 (Version None)
Quarter: 2006Q3

REPORT INFORMATION
  Report Type: 
  Country: None (occurrence: None)
  Receive Date: 20060731
  Receipt Date: 20060622
  Transmission Date: 20061208
  Serious: No
  Sender: FDA-Public Use
  Company Number: 2006PV016218

PATIENT
  Age: 51 Year
  Sex: Female
  Weight: 117.028 kg

DRUGS (3)
  1. BYETTA [Suspect]
     Indication: DIABETES MELLITUS NON-INSULIN-DEPENDENT
     Dosage: SEE IMAGE
     Route: 058
     Dates: start: 20060515, end: 20060618
  2. BYETTA [Suspect]
     Indication: DIABETES MELLITUS NON-INSULIN-DEPENDENT
     Dosage: SEE IMAGE
     Route: 058
     Dates: start: 20060622
  3. METFORMIN HCL [Concomitant]

REACTIONS (4)
  - CYSTITIS [None]
  - EYE PRURITUS [None]
  - PRURITUS [None]
  - URTICARIA LOCALISED [None]
